FAERS Safety Report 5593071-0 (Version None)
Quarter: 2008Q1

REPORT INFORMATION
  Report Type: 
  Country: None (occurrence: None)
  Receive Date: 20080114
  Receipt Date: 20071231
  Transmission Date: 20080703
  Serious: Yes (Death)
  Sender: FDA-Public Use
  Company Number: 100#03#2008-00135

PATIENT
  Age: 69 Year
  Sex: Female

DRUGS (7)
  1. CITALOPRAM HYDROBROMIDE [Suspect]
     Indication: MAJOR DEPRESSION
     Dosage: 40 MG ORAL
     Route: 048
     Dates: start: 20060601
  2. AMISULPRIDE (AMISULPRIDE) [Concomitant]
  3. BENDROFLUMETHIAZIDE (BENDROFLUMETHIAZIDE) [Concomitant]
  4. BISOPROLOL FUMARATE [Concomitant]
  5. LISINOPRIL [Concomitant]
  6. PRIADEL (LITHIUM CARBONATE, LITHIUM CITRATE) [Concomitant]
  7. SIMVASTATIN [Concomitant]

REACTIONS (6)
  - ANTIDEPRESSANT DRUG LEVEL ABOVE THERAPEUTIC [None]
  - ANTIPSYCHOTIC DRUG LEVEL BELOW THERAPEUTIC [None]
  - CARDIAC VENTRICULAR DISORDER [None]
  - DRUG TOXICITY [None]
  - HYPERTENSIVE HEART DISEASE [None]
  - SCAR [None]
